FAERS Safety Report 7267594-2 (Version None)
Quarter: 2011Q1

REPORT INFORMATION
  Report Type: 
  Country: None (occurrence: None)
  Receive Date: 20110201
  Receipt Date: 20110124
  Transmission Date: 20110831
  Serious: Yes (Other)
  Sender: FDA-Public Use
  Company Number: US-RB-019717-11

PATIENT
  Age: 26 Year
  Sex: Female

DRUGS (2)
  1. ADDERALL 10 [Concomitant]
     Indication: ATTENTION DEFICIT/HYPERACTIVITY DISORDER
  2. MUCINEX [Suspect]
     Route: 048

REACTIONS (4)
  - HALLUCINATION [None]
  - DIZZINESS [None]
  - PYREXIA [None]
  - BODY TEMPERATURE INCREASED [None]
